FAERS Safety Report 13953645 (Version 1)
Quarter: 2017Q3

REPORT INFORMATION
  Report Type: Spontaneous
  Country: US (occurrence: None)
  Receive Date: 20170908
  Receipt Date: 20170908
  Transmission Date: 20171128
  Serious: Yes (Hospitalization)
  Sender: FDA-Public Use
  Company Number: None

PATIENT
  Age: 65 Year
  Sex: Female

DRUGS (17)
  1. LISINOPRIL. [Concomitant]
     Active Substance: LISINOPRIL
  2. LETROZOLE. [Concomitant]
     Active Substance: LETROZOLE
  3. MORPHINE SUL [Concomitant]
     Active Substance: MORPHINE SULFATE
  4. METOCLOPRAM [Concomitant]
     Active Substance: METOCLOPRAMIDE
  5. IBRANCE [Suspect]
     Active Substance: PALBOCICLIB
     Indication: NEOPLASM MALIGNANT
     Route: 048
     Dates: start: 20161206
  6. OXYCODONE [Concomitant]
     Active Substance: OXYCODONE
  7. SERTRALINE [Concomitant]
     Active Substance: SERTRALINE HYDROCHLORIDE
  8. VITAMIN D [Concomitant]
     Active Substance: CHOLECALCIFEROL
  9. ONDANSETRON [Concomitant]
     Active Substance: ONDANSETRON
  10. MIRTAZAPINE. [Concomitant]
     Active Substance: MIRTAZAPINE
  11. FUROSEMIDE. [Concomitant]
     Active Substance: FUROSEMIDE
  12. FLAGYL [Concomitant]
     Active Substance: METRONIDAZOLE\METRONIDAZOLE HYDROCHLORIDE
  13. CARVEDILOL. [Concomitant]
     Active Substance: CARVEDILOL
  14. GABAPENTIN. [Concomitant]
     Active Substance: GABAPENTIN
  15. ALPRAZOLAM. [Concomitant]
     Active Substance: ALPRAZOLAM
  16. FLUTICASONE. [Concomitant]
     Active Substance: FLUTICASONE
  17. ATORVASTATIN [Concomitant]
     Active Substance: ATORVASTATIN

REACTIONS (1)
  - Abdominal infection [None]

NARRATIVE: CASE EVENT DATE: 20170818
